FAERS Safety Report 14297363 (Version 1)
Quarter: 2017Q4

REPORT INFORMATION
  Report Type: Spontaneous
  Country: DE (occurrence: DE)
  Receive Date: 20171218
  Receipt Date: 20171218
  Transmission Date: 20180321
  Serious: Yes (Death, Other)
  Sender: FDA-Public Use
  Company Number: DE-PFIZER INC-2017517307

PATIENT
  Sex: Male

DRUGS (1)
  1. BESPONSA [Suspect]
     Active Substance: INOTUZUMAB OZOGAMICIN
     Indication: BURKITT^S LYMPHOMA RECURRENT
     Dosage: 0.5 MG/M2, UNK
     Route: 042
     Dates: start: 201711

REACTIONS (2)
  - General physical health deterioration [Fatal]
  - Product use in unapproved indication [Unknown]
